FAERS Safety Report 7978699-2 (Version None)
Quarter: 2011Q4

REPORT INFORMATION
  Report Type: 
  Country: None (occurrence: None)
  Receive Date: 20111206
  Receipt Date: 20111129
  Transmission Date: 20120403
  Serious: Yes (Hospitalization)
  Sender: FDA-Public Use
  Company Number: 2011SP005798

PATIENT
  Age: 25 Year
  Sex: Female
  Weight: 104.3273 kg

DRUGS (1)
  1. NUVARING [Suspect]
     Indication: PREGNANCY
     Dates: start: 20080101, end: 20080224

REACTIONS (25)
  - CONNECTIVE TISSUE DISORDER [None]
  - PLEURISY [None]
  - NAUSEA [None]
  - PULMONARY EMBOLISM [None]
  - BRONCHITIS [None]
  - PROTEIN URINE PRESENT [None]
  - BACTERIAL TEST POSITIVE [None]
  - TACHYCARDIA [None]
  - PLEURAL EFFUSION [None]
  - PNEUMONIA BACTERIAL [None]
  - PNEUMONIA VIRAL [None]
  - IMPAIRED WORK ABILITY [None]
  - ABORTION SPONTANEOUS [None]
  - MUSCULOSKELETAL PAIN [None]
  - TOXICOLOGIC TEST ABNORMAL [None]
  - HAEMATOCRIT DECREASED [None]
  - PREGNANCY [None]
  - HYPOAESTHESIA [None]
  - HAEMOGLOBIN DECREASED [None]
  - BLOOD URINE PRESENT [None]
  - PYREXIA [None]
  - HYPOALBUMINAEMIA [None]
  - UPPER RESPIRATORY TRACT INFECTION [None]
  - BACK PAIN [None]
  - PLATELET COUNT INCREASED [None]
